FAERS Safety Report 8988941 (Version 1)
Quarter: 2012Q4

REPORT INFORMATION
  Report Type: Spontaneous
  Country: US (occurrence: None)
  Receive Date: 20121220
  Receipt Date: 20121220
  Transmission Date: 20130627
  Serious: Yes (Other)
  Sender: FDA-Public Use
  Company Number: ABR_00766_2012

PATIENT
  Age: 46 Year
  Sex: Male

DRUGS (1)
  1. NITROGLYCERIN [Suspect]
     Indication: CHEST PAIN
     Route: 060

REACTIONS (3)
  - Atrioventricular block complete [None]
  - Dizziness [None]
  - Loss of consciousness [None]
